FAERS Safety Report 19311048 (Version 1)
Quarter: 2021Q2

REPORT INFORMATION
  Report Type: Report from Study
  Country: None (occurrence: US)
  Receive Date: 20210526
  Receipt Date: 20210526
  Transmission Date: 20210717
  Serious: Yes (Other)
  Sender: FDA-Public Use
  Company Number: US-ABBVIE-21K-163-3917845-00

PATIENT
  Age: 45 Year
  Sex: Male

DRUGS (1)
  1. HUMIRA [Suspect]
     Active Substance: ADALIMUMAB
     Indication: PRODUCT USED FOR UNKNOWN INDICATION
     Dosage: CF
     Route: 058
     Dates: start: 2021

REACTIONS (5)
  - Impaired healing [Unknown]
  - Fatigue [Unknown]
  - Nausea [Unknown]
  - Blister [Not Recovered/Not Resolved]
  - Rhinalgia [Unknown]

NARRATIVE: CASE EVENT DATE: 20210510
